FAERS Safety Report 12961233 (Version 4)
Quarter: 2018Q1

REPORT INFORMATION
  Report Type: Spontaneous
  Country: US (occurrence: US)
  Receive Date: 20161121
  Receipt Date: 20180312
  Transmission Date: 20180508
  Serious: Yes (Death)
  Sender: FDA-Public Use
  Company Number: US-PFIZER INC-2016535196

PATIENT
  Age: 73 Year
  Sex: Female

DRUGS (1)
  1. REVATIO [Suspect]
     Active Substance: SILDENAFIL CITRATE
     Dosage: 20 MG, 1-3 X A DAY

REACTIONS (3)
  - Death [Fatal]
  - Oropharyngeal pain [Unknown]
  - Product use issue [Unknown]
